FAERS Safety Report 13831400 (Version 1)
Quarter: 2017Q3

REPORT INFORMATION
  Report Type: Spontaneous
  Country: US (occurrence: US)
  Receive Date: 20170803
  Receipt Date: 20170803
  Transmission Date: 20171127
  Serious: Yes (Hospitalization)
  Sender: FDA-Public Use
  Company Number: US-ELI_LILLY_AND_COMPANY-US201707010240

PATIENT
  Sex: Female

DRUGS (3)
  1. HUMALOG MIX75/25 [Suspect]
     Active Substance: INSULIN LISPRO
     Dosage: UNK, UNKNOWN
     Route: 065
     Dates: start: 201706
  2. HUMALOG MIX75/25 [Suspect]
     Active Substance: INSULIN LISPRO
     Indication: TYPE 2 DIABETES MELLITUS
     Dosage: UNK, UNKNOWN
     Route: 065
     Dates: start: 1996
  3. HUMALOG MIX75/25 [Suspect]
     Active Substance: INSULIN LISPRO
     Dosage: UNK, UNKNOWN
     Route: 065

REACTIONS (11)
  - Product storage error [Not Recovered/Not Resolved]
  - Uterine haemorrhage [Unknown]
  - Foot fracture [Unknown]
  - Cystitis interstitial [Not Recovered/Not Resolved]
  - Alopecia [Unknown]
  - Angina pectoris [Unknown]
  - Nasopharyngitis [Not Recovered/Not Resolved]
  - Diabetic microangiopathy [Unknown]
  - Incorrect drug administration duration [Unknown]
  - Fungal infection [Unknown]
  - Blood glucose increased [Unknown]

NARRATIVE: CASE EVENT DATE: 1996
